FAERS Safety Report 13758763 (Version 1)
Quarter: 2017Q3

REPORT INFORMATION
  Report Type: Spontaneous
  Country: US (occurrence: US)
  Receive Date: 20170717
  Receipt Date: 20170717
  Transmission Date: 20171127
  Serious: Yes (Hospitalization)
  Sender: FDA-Public Use
  Company Number: None

PATIENT
  Age: 81 Year
  Sex: Female

DRUGS (13)
  1. SUDAFED [Concomitant]
     Active Substance: PSEUDOEPHEDRINE HYDROCHLORIDE
  2. ADVAIR HFA [Concomitant]
     Active Substance: FLUTICASONE PROPIONATE\SALMETEROL XINAFOATE
  3. GLIPIZIDE. [Concomitant]
     Active Substance: GLIPIZIDE
  4. XARELTO [Concomitant]
     Active Substance: RIVAROXABAN
  5. ANASTROZOLE. [Concomitant]
     Active Substance: ANASTROZOLE
  6. LEVOTHYROXIN [Concomitant]
     Active Substance: LEVOTHYROXINE
  7. PREDNISONE. [Concomitant]
     Active Substance: PREDNISONE
  8. CLONAZEPAM. [Concomitant]
     Active Substance: CLONAZEPAM
  9. FOLIC ACID. [Concomitant]
     Active Substance: FOLIC ACID
  10. IBRANCE [Suspect]
     Active Substance: PALBOCICLIB
     Indication: BREAST CANCER FEMALE
     Dosage: 1 CAPSULE DAILY ORAL
     Route: 048
     Dates: start: 20160809
  11. CALTRATE +D [Concomitant]
  12. DOCQLACE [Concomitant]
     Active Substance: DOCUSATE SODIUM
  13. LORATADINE. [Concomitant]
     Active Substance: LORATADINE

REACTIONS (2)
  - Intestinal obstruction [None]
  - Drug dose omission [None]
